FAERS Safety Report 5765729-1 (Version None)
Quarter: 2008Q2

REPORT INFORMATION
  Report Type: 
  Country: None (occurrence: None)
  Receive Date: 20080611
  Receipt Date: 20080602
  Transmission Date: 20081010
  Serious: Yes (Other)
  Sender: FDA-Public Use
  Company Number: PHHY2008CA09881

PATIENT
  Sex: Male

DRUGS (7)
  1. LOPRESSOR [Suspect]
     Indication: HYPERTENSION
     Dosage: 25 MG, BID
     Route: 048
  2. LOPRESSOR [Suspect]
     Dosage: 50 MG, BID
     Route: 048
  3. LOPRESSOR [Suspect]
     Dosage: 75 MG, BID
     Route: 048
  4. LOPRESSOR [Suspect]
     Dosage: 50 MG, BID
     Route: 048
  5. ALTACE [Suspect]
  6. COVERSYL                                /BEL/ [Suspect]
  7. NORVASC [Concomitant]

REACTIONS (6)
  - BLOOD PRESSURE INADEQUATELY CONTROLLED [None]
  - BLOOD PRESSURE INCREASED [None]
  - DRUG INEFFECTIVE [None]
  - ERYTHEMA [None]
  - PULMONARY OEDEMA [None]
  - SYNCOPE [None]
